FAERS Safety Report 6800571-1 (Version None)
Quarter: 2010Q2

REPORT INFORMATION
  Report Type: 
  Country: None (occurrence: None)
  Receive Date: 20100625
  Receipt Date: 20100625
  Transmission Date: 20101027
  Serious: Yes (Hospitalization, Disabling)
  Sender: FDA-Public Use
  Company Number: None

PATIENT
  Age: 32 Year
  Sex: Female
  Weight: 58.9676 kg

DRUGS (1)
  1. MIRENA [Suspect]
     Indication: CONTRACEPTION
     Dates: start: 20100611, end: 20100612

REACTIONS (5)
  - ABDOMINAL PAIN [None]
  - DEVICE DISLOCATION [None]
  - MEDICAL DEVICE COMPLICATION [None]
  - PAIN [None]
  - UTERINE PERFORATION [None]
